FAERS Safety Report 5842976-1 (Version None)
Quarter: 2008Q3

REPORT INFORMATION
  Report Type: 
  Country: None (occurrence: None)
  Receive Date: 20080808
  Receipt Date: 20080724
  Transmission Date: 20090109
  Serious: Yes (Disabling)
  Sender: FDA-Public Use
  Company Number: 2008SP013334

PATIENT
  Age: 39 Year
  Sex: Female

DRUGS (2)
  1. REBETOL [Suspect]
     Indication: HEPATITIS C
     Dates: start: 20051111, end: 20060413
  2. PEGASYS [Suspect]
     Indication: HEPATITIS C
     Dates: start: 20051111, end: 20060413

REACTIONS (1)
  - URTICARIA [None]
